FAERS Safety Report 4650361-3 (Version None)
Quarter: 2005Q2

REPORT INFORMATION
  Report Type: 
  Country: None (occurrence: None)
  Receive Date: 20050429
  Receipt Date: 20050420
  Transmission Date: 20051028
  Serious: Yes (Hospitalization)
  Sender: FDA-Public Use
  Company Number: 2005CG00659

PATIENT
  Age: 59 Year
  Sex: Male

DRUGS (2)
  1. NAROPIN [Suspect]
     Indication: POSTOPERATIVE ANALGESIA
     Dosage: 225 MG ONCE IF
     Dates: start: 20050309, end: 20050309
  2. OFLOCET [Concomitant]

REACTIONS (3)
  - ESCHERICHIA INFECTION [None]
  - INJECTION SITE INFECTION [None]
  - POSTOPERATIVE INFECTION [None]
